FAERS Safety Report 7946752-5 (Version None)
Quarter: 2011Q4

REPORT INFORMATION
  Report Type: 
  Country: None (occurrence: None)
  Receive Date: 20111125
  Receipt Date: 20111118
  Transmission Date: 20120403
  Serious: Yes (Other)
  Sender: FDA-Public Use
  Company Number: NGX_00613_2011

PATIENT
  Sex: Female
  Weight: 100 kg

DRUGS (4)
  1. DIMENHYDRINATE [Concomitant]
  2. TILIDIN (TILIDIN) 50 MG (NOT SPECIFIED) [Suspect]
     Indication: NEURALGIA
     Dosage: (50 MG 1X ORAL)
     Route: 048
     Dates: start: 20110914, end: 20110914
  3. METOCLOPRAMIDE [Concomitant]
  4. QUTENZA [Suspect]
     Indication: NEURALGIA
     Dosage: (537 MG 1X TOPICAL)
     Route: 061
     Dates: start: 20110913, end: 20110913

REACTIONS (11)
  - RADICULOPATHY [None]
  - RESTLESSNESS [None]
  - CONDITION AGGRAVATED [None]
  - VOMITING [None]
  - ASTHENIA [None]
  - HYPERHIDROSIS [None]
  - BURNING FEET SYNDROME [None]
  - PAIN [None]
  - APALLIC SYNDROME [None]
  - NAUSEA [None]
  - DIZZINESS [None]
